FAERS Safety Report 13055883 (Version 1)
Quarter: 2016Q4

REPORT INFORMATION
  Report Type: Other
  Country: None (occurrence: US)
  Receive Date: 20161222
  Receipt Date: 20161222
  Transmission Date: 20170207
  Serious: Yes (Other)
  Sender: FDA-Public Use
  Company Number: US-GUTHY-RENKER LLC-1061196

PATIENT
  Age: 65 Year
  Sex: Female

DRUGS (2)
  1. IT COSMETICS  BYE BYE FOUNDATION WITH SPF 50+ [Suspect]
     Active Substance: TITANIUM DIOXIDE\ZINC OXIDE
     Indication: PROPHYLAXIS AGAINST SOLAR RADIATION
     Route: 061
     Dates: start: 20161130, end: 20161203
  2. HORMONE SUPPLEMENTS, BENADRYL, VITAMINS, EPIPEN [Concomitant]

REACTIONS (3)
  - Anaphylactic reaction [None]
  - Rash [None]
  - Pharyngeal oedema [Recovered/Resolved]

NARRATIVE: CASE EVENT DATE: 20161203
